FAERS Safety Report 4519200-5 (Version None)
Quarter: 2004Q4

REPORT INFORMATION
  Report Type: 
  Country: None (occurrence: None)
  Receive Date: 20041206
  Receipt Date: 20041130
  Transmission Date: 20050328
  Serious: Yes (Life-Threatening, Hospitalization)
  Sender: FDA-Public Use
  Company Number: US-MERCK-0412USA00012

PATIENT
  Age: 41 Year
  Sex: Male

DRUGS (1)
  1. VIOXX [Suspect]
     Indication: FLANK PAIN
     Route: 048
     Dates: start: 20031111, end: 20031130

REACTIONS (2)
  - HEART RATE IRREGULAR [None]
  - THYROID DISORDER [None]
